FAERS Safety Report 7791322-5 (Version None)
Quarter: 2011Q4

REPORT INFORMATION
  Report Type: 
  Country: None (occurrence: None)
  Receive Date: 20111003
  Receipt Date: 20110920
  Transmission Date: 20120403
  Serious: No
  Sender: FDA-Public Use
  Company Number: US-BIOGENIDEC-2011BI036220

PATIENT
  Age: 42 Year
  Sex: Male

DRUGS (3)
  1. ADVIL PM [Concomitant]
     Indication: PREMEDICATION
  2. TYLENOL-500 [Concomitant]
     Indication: PREMEDICATION
  3. AVONEX [Suspect]
     Indication: MULTIPLE SCLEROSIS
     Route: 030
     Dates: start: 20110616

REACTIONS (5)
  - HEAD INJURY [None]
  - TEMPERATURE INTOLERANCE [None]
  - ROAD TRAFFIC ACCIDENT [None]
  - FALL [None]
  - HEADACHE [None]
